FAERS Safety Report 8975545 (Version 2)
Quarter: 2013Q2

REPORT INFORMATION
  Report Type: Spontaneous
  Country: US (occurrence: US)
  Receive Date: 20121219
  Receipt Date: 20130606
  Transmission Date: 20140414
  Serious: No
  Sender: FDA-Public Use
  Company Number: US-AMGEN-USASP2012072659

PATIENT
  Sex: Female

DRUGS (1)
  1. PROLIA [Suspect]
     Indication: PRODUCT USED FOR UNKNOWN INDICATION
     Dosage: UNK
     Dates: start: 201204

REACTIONS (14)
  - Bone density abnormal [Unknown]
  - Infection [Unknown]
  - Neck pain [Unknown]
  - Post procedural complication [Unknown]
  - Expired drug administered [Unknown]
  - Malaise [Not Recovered/Not Resolved]
  - Frustration [Unknown]
  - Abdominal pain [Unknown]
  - Gait disturbance [Unknown]
  - Dysstasia [Unknown]
  - Asthenia [Unknown]
  - Fatigue [Unknown]
  - Pain [Unknown]
  - Decreased appetite [Unknown]
